FAERS Safety Report 21207104 (Version 1)
Quarter: 2022Q3

REPORT INFORMATION
  Report Type: Spontaneous
  Country: US (occurrence: None)
  Receive Date: 20220811
  Receipt Date: 20220811
  Transmission Date: 20221027
  Serious: No
  Sender: FDA-Public Use
  Company Number: None

PATIENT
  Age: 37 Year
  Sex: Female

DRUGS (5)
  1. MENOPUR [Suspect]
     Active Substance: FOLLITROPIN\LUTEINIZING HORMONE
     Route: 058
     Dates: start: 20220802
  2. FOLLISTIM AQ [Concomitant]
     Active Substance: FOLLITROPIN
  3. GANIRELIX ACETATE [Concomitant]
     Active Substance: GANIRELIX ACETATE
  4. PREGNYL [Concomitant]
     Active Substance: CHORIOGONADOTROPIN ALFA
  5. PROGESTERONE [Concomitant]
     Active Substance: PROGESTERONE

REACTIONS (2)
  - Fatigue [None]
  - Headache [None]

NARRATIVE: CASE EVENT DATE: 20220810
